FAERS Safety Report 9587023 (Version 3)
Quarter: 2013Q4

REPORT INFORMATION
  Report Type: Spontaneous
  Country: US (occurrence: DE)
  Receive Date: 20131003
  Receipt Date: 20131104
  Transmission Date: 20140711
  Serious: Yes (Death, Life-Threatening)
  Sender: FDA-Public Use
  Company Number: DE-FRI-1000049306

PATIENT
  Age: 87 Year
  Sex: Female

DRUGS (16)
  1. CEFTAROLINE FOSAMIL [Suspect]
     Indication: WOUND INFECTION STAPHYLOCOCCAL
     Dosage: 600 MG
     Route: 042
     Dates: start: 20130920
  2. ASS 100 [Concomitant]
     Indication: ANTICOAGULANT THERAPY
     Dosage: 100 MG
     Route: 048
  3. PLAVIX [Concomitant]
     Indication: THROMBOSIS PROPHYLAXIS
     Dosage: 75 MG
     Route: 048
  4. MONO-EMBOLEX [Concomitant]
     Indication: THROMBOSIS PROPHYLAXIS
  5. ALLOPURINOL [Concomitant]
     Indication: HYPERURICAEMIA
     Dosage: 100 MG
     Route: 048
  6. RAMIPRIL [Concomitant]
     Indication: HYPERTENSION
     Dosage: 5 MG
     Route: 048
  7. RAMIPRIL [Concomitant]
     Indication: PROPHYLAXIS
     Route: 048
  8. METOPROLOL [Concomitant]
     Indication: HYPERTENSION
     Dosage: 47.5 MG
     Route: 048
  9. TOREM [Concomitant]
     Indication: HYPERTENSION
     Dosage: 30 MG
     Route: 048
  10. SIMVASTATIN [Concomitant]
     Indication: HYPERCHOLESTEROLAEMIA
     Dosage: 10 MG
     Route: 048
  11. XARELTO [Concomitant]
     Indication: PROPHYLAXIS
     Dosage: 15 MG
     Route: 048
  12. FERROSANOL [Concomitant]
     Route: 048
  13. JANUVIA [Concomitant]
     Dosage: 50 MG
     Route: 048
  14. REKAWAN [Concomitant]
     Route: 048
  15. PANTOZOL [Concomitant]
     Dosage: 20 MG
     Route: 048
  16. TRAMAL [Concomitant]
     Dosage: 50 MG
     Route: 048

REACTIONS (1)
  - Chest pain [Fatal]
